FAERS Safety Report 10608135 (Version 2)
Quarter: 2015Q1

REPORT INFORMATION
  Report Type: Spontaneous
  Country: DE (occurrence: DE)
  Receive Date: 20141125
  Receipt Date: 20150210
  Transmission Date: 20150720
  Serious: Yes (Other)
  Sender: FDA-Public Use
  Company Number: DE-TEVA-522514GER

PATIENT
  Sex: Female
  Weight: 60 kg

DRUGS (2)
  1. BELOC ZOK MITE 47.5 MG [Concomitant]
     Dosage: .5 DOSAGE FORMS DAILY;
     Dates: start: 200601
  2. NIFEDIPINE RETARDTABLETTEN [Suspect]
     Active Substance: NIFEDIPINE
     Dates: start: 201410

REACTIONS (4)
  - Polyneuropathy [Unknown]
  - Paraesthesia [Unknown]
  - Reaction to drug excipients [Unknown]
  - Product substitution issue [Unknown]
